FAERS Safety Report 8891357 (Version 1)
Quarter: 2012Q4

REPORT INFORMATION
  Report Type: Spontaneous
  Country: US (occurrence: None)
  Receive Date: 20121102
  Receipt Date: 20121102
  Transmission Date: 20130627
  Serious: No
  Sender: FDA-Public Use
  Company Number: None

PATIENT
  Age: 52 Year
  Sex: Female

DRUGS (1)
  1. VIVELLE DOT [Suspect]
     Indication: POSTMENOPAUSAL SYMPTOMS
     Route: 061
     Dates: start: 20120910, end: 20121010

REACTIONS (1)
  - Drug ineffective [None]
